FAERS Safety Report 20114319 (Version 7)
Quarter: 2024Q1

REPORT INFORMATION
  Report Type: Spontaneous
  Country: US (occurrence: US)
  Receive Date: 20211125
  Receipt Date: 20240208
  Transmission Date: 20240410
  Serious: No
  Sender: FDA-Public Use
  Company Number: US-PFIZER INC-202101488353

PATIENT
  Age: 54 Year
  Sex: Female

DRUGS (10)
  1. IBRANCE [Suspect]
     Active Substance: PALBOCICLIB
     Indication: Breast cancer female
     Dosage: 125 MG
  2. IBRANCE [Suspect]
     Active Substance: PALBOCICLIB
     Dosage: 75 MG, TAKE 1 TABLET BY MOUTH DAILY ON DAYS 1-21, TAKE 7 DAYS OFF.
     Route: 048
     Dates: start: 20211223
  3. VITAMIN D3 [Concomitant]
     Active Substance: CHOLECALCIFEROL
     Dosage: 2000 IU
  4. FASLODEX [Concomitant]
     Active Substance: FULVESTRANT
     Dosage: 250/5ML
  5. GOSERELIN [Concomitant]
     Active Substance: GOSERELIN
     Dosage: 3.6 MG
  6. CALCIUM CARBONATE\CHOLECALCIFEROL [Concomitant]
     Active Substance: CALCIUM CARBONATE\CHOLECALCIFEROL
     Dosage: UNK
  7. CITRUS BIOFLAVONOIDS [Concomitant]
     Active Substance: CITRUS BIOFLAVONOIDS
     Dosage: UNK
  8. TYLENOL [Concomitant]
     Active Substance: ACETAMINOPHEN
     Dosage: UNK
  9. XANAX [Concomitant]
     Active Substance: ALPRAZOLAM
     Dosage: UNK
  10. ZOLEDRONIC [Concomitant]
     Active Substance: ZOLEDRONIC ACID
     Dosage: UNK

REACTIONS (9)
  - White blood cell count decreased [Unknown]
  - Red blood cell count decreased [Unknown]
  - Fatigue [Unknown]
  - Madarosis [Unknown]
  - Poor quality sleep [Not Recovered/Not Resolved]
  - Depression [Not Recovered/Not Resolved]
  - Infection [Unknown]
  - Insomnia [Unknown]
  - Nasopharyngitis [Unknown]
